FAERS Safety Report 15331663 (Version 1)
Quarter: 2018Q3

REPORT INFORMATION
  Report Type: Spontaneous
  Country: US (occurrence: US)
  Receive Date: 20180829
  Receipt Date: 20180829
  Transmission Date: 20181010
  Serious: Yes (Hospitalization)
  Sender: FDA-Public Use
  Company Number: US-SA-2018SA230821

PATIENT
  Sex: Female

DRUGS (1)
  1. LANTUS [Suspect]
     Active Substance: INSULIN GLARGINE
     Dosage: 40 IU, HS

REACTIONS (4)
  - Blood glucose increased [Unknown]
  - Anxiety [Unknown]
  - Dyspnoea [Unknown]
  - Drug dose omission [Unknown]
